FAERS Safety Report 25944367 (Version 2)
Quarter: 2025Q4

REPORT INFORMATION
  Report Type: Spontaneous
  Country: SG (occurrence: SG)
  Receive Date: 20251021
  Receipt Date: 20251224
  Transmission Date: 20260117
  Serious: Yes (Other)
  Sender: JOHNSON AND JOHNSON
  Company Number: SG-JNJFOC-20251015926

PATIENT
  Sex: Male
  Weight: 80 kg

DRUGS (1)
  1. TALVEY [Suspect]
     Active Substance: TALQUETAMAB-TGVS
     Indication: Plasma cell myeloma refractory
     Dosage: 2ND TREATMENT DOSE

REACTIONS (3)
  - Hepatic mass [Unknown]
  - Platelet count decreased [Unknown]
  - White blood cell count decreased [Unknown]
